FAERS Safety Report 6354023-6 (Version None)
Quarter: 2009Q3

REPORT INFORMATION
  Report Type: 
  Country: None (occurrence: None)
  Receive Date: 20090908
  Receipt Date: 20090831
  Transmission Date: 20100115
  Serious: Yes (Death)
  Sender: FDA-Public Use
  Company Number: 2009US003331

PATIENT
  Age: 72 Year
  Sex: Male

DRUGS (8)
  1. PROGRAF [Suspect]
     Indication: RENAL TRANSPLANT
     Dosage: 1.5 MG, BID, ORAL
     Route: 048
     Dates: start: 20090629
  2. VALCYTE [Suspect]
     Indication: ANTIVIRAL PROPHYLAXIS
     Dosage: 450 MG, QOD, ORAL
     Route: 048
     Dates: start: 20090707
  3. CELLCEPT [Suspect]
     Indication: RENAL TRANSPLANT
     Dosage: 500 MG, BID, ORAL
     Route: 048
     Dates: start: 20090623
  4. PREDNISONE TAB [Suspect]
     Indication: RENAL TRANSPLANT
     Dosage: 10 MG, UID/QD, ORAL
     Route: 048
     Dates: start: 20090625
  5. AMLODIPINE [Concomitant]
  6. AMIODARONE HCL [Concomitant]
  7. BUMEX [Concomitant]
  8. BACTRIM (TRIMETHOPRIM, SULFAMEHOXAZOLE) [Concomitant]

REACTIONS (1)
  - DEATH [None]
